FAERS Safety Report 6512248-0 (Version None)
Quarter: 2009Q4

REPORT INFORMATION
  Report Type: 
  Country: None (occurrence: None)
  Receive Date: 20091222
  Receipt Date: 20090731
  Transmission Date: 20100525
  Serious: Yes (Other)
  Sender: FDA-Public Use
  Company Number: US-ASTRAZENECA-2009UW21638

PATIENT
  Age: 50 Year
  Sex: Male
  Weight: 92.5 kg

DRUGS (5)
  1. CRESTOR [Suspect]
     Route: 048
     Dates: start: 20080101
  2. LUNESTA [Concomitant]
  3. LEVOTHYROXINE SODIUM [Concomitant]
     Indication: HYPOTHYROIDISM
  4. ZANTAC [Concomitant]
     Indication: DYSPEPSIA
  5. BABY ASPIRIN [Concomitant]

REACTIONS (4)
  - FATIGUE [None]
  - MUSCLE INJURY [None]
  - MUSCULAR WEAKNESS [None]
  - MYALGIA [None]
